FAERS Safety Report 24318235 (Version 1)
Quarter: 2024Q3

REPORT INFORMATION
  Report Type: Spontaneous
  Country: GB (occurrence: GB)
  Receive Date: 20240913
  Receipt Date: 20240913
  Transmission Date: 20241017
  Serious: Yes (Other)
  Sender: TEVA
  Company Number: GB-MHRA-TPP21551222C8960202YC1725437340447

PATIENT
  Age: 75 Year
  Sex: Female

DRUGS (14)
  1. RAMIPRIL [Suspect]
     Active Substance: RAMIPRIL
     Indication: Product used for unknown indication
     Route: 065
     Dates: start: 20240903
  2. LEVETIRACETAM [Concomitant]
     Active Substance: LEVETIRACETAM
     Indication: Product used for unknown indication
     Dosage: TAKE 1 TABLET TWICE A DAY
     Dates: start: 20240903
  3. ALENDRONIC ACID [Concomitant]
     Active Substance: ALENDRONIC ACID
     Indication: Product used for unknown indication
     Dosage: TAKE ONE TABLET ONCE WEEKLY
     Dates: start: 20240903
  4. FERROUS SULFATE [Concomitant]
     Active Substance: FERROUS SULFATE
     Indication: Product used for unknown indication
     Dosage: TAKE ONE ONCE DAILY
     Dates: start: 20240903
  5. FLUDROCORTISONE [Concomitant]
     Active Substance: FLUDROCORTISONE
     Indication: Product used for unknown indication
     Dosage: TAKE 1 TABLET DAILY
     Dates: start: 20240903
  6. ADCAL [Concomitant]
     Indication: Product used for unknown indication
     Dosage: TAKE TWO TWICE DAILY
     Dates: start: 20240903
  7. DEPAKOTE [Concomitant]
     Active Substance: DIVALPROEX SODIUM
     Indication: Product used for unknown indication
     Dosage: TAKE 1 TABLET TWICE A DAY
     Dates: start: 20240903
  8. ANASTROZOLE [Concomitant]
     Active Substance: ANASTROZOLE
     Indication: Product used for unknown indication
     Dosage: TAKE ONE DAILY
     Dates: start: 20240903
  9. DONEPEZIL HYDROCHLORIDE [Concomitant]
     Active Substance: DONEPEZIL HYDROCHLORIDE
     Indication: Product used for unknown indication
     Dosage: TAKE ONE DAILY
     Dates: start: 20240903
  10. ATORVASTATIN [Concomitant]
     Active Substance: ATORVASTATIN
     Indication: Product used for unknown indication
     Dosage: TAKE ONE DAILY
     Dates: start: 20240903
  11. OLANZAPINE [Concomitant]
     Active Substance: OLANZAPINE
     Indication: Product used for unknown indication
     Dosage: TAKE ONE TABLET AT NIGHT
     Dates: start: 20240903
  12. ACETAMINOPHEN [Concomitant]
     Active Substance: ACETAMINOPHEN
     Indication: Product used for unknown indication
     Dosage: TAKE 1 OR 2 4 TIMES/DAY DO NOT TAKE MORE THAN 8...
     Dates: start: 20240903
  13. IBUPROFEN [Concomitant]
     Active Substance: IBUPROFEN
     Indication: Product used for unknown indication
     Dosage: TIME INTERVAL: 0.33333333 DAYS: APPLY 3 TIMES/DAY
     Dates: start: 20240903
  14. LEVOTHYROXINE [Concomitant]
     Active Substance: LEVOTHYROXINE\LEVOTHYROXINE SODIUM
     Indication: Product used for unknown indication
     Dosage: TAKE ONE EACH MORNING (TOTAL DOSE 75MCG)
     Dates: start: 20240903

REACTIONS (2)
  - Chest discomfort [Unknown]
  - Cough [Unknown]
